FAERS Safety Report 8906427 (Version 1)
Quarter: 2012Q4

REPORT INFORMATION
  Report Type: Spontaneous
  Country: US (occurrence: None)
  Receive Date: 20121109
  Receipt Date: 20121109
  Transmission Date: 20130627
  Serious: No
  Sender: FDA-Public Use
  Company Number: None

PATIENT
  Age: 50 Year
  Sex: Female
  Weight: 69.5 kg

DRUGS (3)
  1. TAMOXIFEN [Suspect]
     Indication: ANTIESTROGEN THERAPY
     Route: 048
     Dates: start: 201112, end: 201207
  2. LUPRON [Concomitant]
  3. ATIVAN [Concomitant]

REACTIONS (6)
  - Gastrooesophageal reflux disease [None]
  - Oropharyngeal pain [None]
  - Sensation of foreign body [None]
  - Throat irritation [None]
  - Dysphonia [None]
  - Sleep disorder [None]
